FAERS Safety Report 9801207 (Version 7)
Quarter: 2016Q2

REPORT INFORMATION
  Report Type: Spontaneous
  Country: US (occurrence: US)
  Receive Date: 20140107
  Receipt Date: 20160404
  Transmission Date: 20160815
  Serious: Yes (Hospitalization, Other)
  Sender: FDA-Public Use
  Company Number: US-PFIZER INC-2014002022

PATIENT
  Age: 67 Year
  Sex: Female
  Weight: 74 kg

DRUGS (30)
  1. RAPAMUNE [Suspect]
     Active Substance: SIROLIMUS
     Indication: HEART TRANSPLANT
     Dosage: 1 MG, DAILY
     Route: 048
     Dates: start: 1999
  2. RAPAMUNE [Suspect]
     Active Substance: SIROLIMUS
     Indication: IMMUNOSUPPRESSION
     Dosage: 0.5 MG, UNK
     Dates: start: 2013
  3. ASPIRIN E.C [Concomitant]
     Active Substance: ASPIRIN
     Dosage: 92 MG, 1X/DAY
  4. COREG [Concomitant]
     Active Substance: CARVEDILOL
     Dosage: 12.5 MG, 2X/DAY, (DAILY WITH MEALS)
     Route: 048
  5. LEXAPRO [Concomitant]
     Active Substance: ESCITALOPRAM OXALATE
     Dosage: 30 MG, DAILY
     Route: 048
  6. LANTUS [Concomitant]
     Active Substance: INSULIN GLARGINE
     Indication: TYPE 1 DIABETES MELLITUS
     Dosage: 45 IU, 1X/DAY (NIGHTLY) (QHS)
     Route: 058
  7. LANTUS [Concomitant]
     Active Substance: INSULIN GLARGINE
     Dosage: 15 IU, UNK (15UNITS AT BEDTIME)
  8. ZAROXOLYN [Concomitant]
     Active Substance: METOLAZONE
     Dosage: 2.5 MG, DAILY (AS NEEDED)
     Route: 048
  9. DEMADEX [Concomitant]
     Active Substance: TORSEMIDE
     Dosage: 20 MG, DAILY
     Route: 048
  10. RAPAMUNE [Suspect]
     Active Substance: SIROLIMUS
     Dosage: 1 MG, UNK
  11. COUMADINE [Suspect]
     Active Substance: WARFARIN SODIUM
     Dosage: UNK
  12. CELLCEPT [Concomitant]
     Active Substance: MYCOPHENOLATE MOFETIL\MYCOPHENOLATE MOFETIL HYDROCHLORIDE
     Dosage: 1 MG, 2X/DAY(1MG CAPSULE TWICE DAILY)
  13. COUMADINE [Suspect]
     Active Substance: WARFARIN SODIUM
     Dosage: 2.5 MG, UNK (6 DAYS A WEEK AND 5 MG 1 DAY A WEEK)
     Route: 048
  14. ESTRACE [Concomitant]
     Active Substance: ESTRADIOL
     Dosage: 2 G, (3 TIMES A WEEK)
     Route: 067
  15. COUMADINE [Suspect]
     Active Substance: WARFARIN SODIUM
     Indication: THROMBOSIS
     Dosage: 5 MG, DAILY
     Route: 048
  16. PRILOSEC [Concomitant]
     Active Substance: OMEPRAZOLE MAGNESIUM
     Dosage: 40 MG, DAILY
     Route: 048
  17. NOVOLOG [Concomitant]
     Active Substance: INSULIN ASPART
     Indication: HYPERGLYCAEMIA
     Dosage: 15 IU, 3X/DAY (INTO THE SKIN, BEFORE MEALS)
     Route: 058
  18. NOVOLOG [Concomitant]
     Active Substance: INSULIN ASPART
     Indication: TYPE 1 DIABETES MELLITUS
     Dosage: UNK, 3X/DAY (25-35 UNITS)
     Route: 058
  19. K-DUR [Concomitant]
     Active Substance: POTASSIUM CHLORIDE
     Dosage: 10 MEQ, DAILY
     Route: 048
  20. ATORVASTATIN CALCIUM. [Concomitant]
     Active Substance: ATORVASTATIN CALCIUM
     Dosage: UNK
  21. CRESTOR [Concomitant]
     Active Substance: ROSUVASTATIN CALCIUM
     Indication: BLOOD CHOLESTEROL ABNORMAL
     Dosage: 20 MG, DAILY
     Route: 048
     Dates: start: 1999
  22. XANAX [Concomitant]
     Active Substance: ALPRAZOLAM
     Dosage: 1 MG, AS NEEDED
  23. ASCORBIC ACID WITH ROSE HIPS [Concomitant]
     Active Substance: ASCORBIC ACID
     Dosage: 1000 MG, 3X/DAY
     Route: 048
  24. FLONASE [Concomitant]
     Active Substance: FLUTICASONE PROPIONATE
     Dosage: UNK (50 MCG/ACTUATION NASAL SPRAY, 1 SPRAY)
     Route: 045
  25. CELLCEPT [Concomitant]
     Active Substance: MYCOPHENOLATE MOFETIL\MYCOPHENOLATE MOFETIL HYDROCHLORIDE
     Indication: IMMUNOSUPPRESSANT DRUG THERAPY
     Dosage: 500 MG, 2X/DAY
     Route: 048
     Dates: start: 1999
  26. TYLENOL [Concomitant]
     Active Substance: ACETAMINOPHEN
     Indication: PAIN
     Dosage: 500 MG, AS NEEDED
     Route: 048
  27. ASPIRIN E.C [Concomitant]
     Active Substance: ASPIRIN
     Indication: CARDIAC DISORDER
     Dosage: 81 MG, DAILY, (TAKE WITH FOOD)
     Route: 048
     Dates: start: 1999
  28. NOVOLOG [Concomitant]
     Active Substance: INSULIN ASPART
     Dosage: UNK, AS NEEDED (25-35 UNITS) (PRN AS DIRECTED)
     Route: 058
  29. NOVOLOG [Concomitant]
     Active Substance: INSULIN ASPART
     Dosage: UNK (15UNITS PRIOR TO EACH MEAL)
  30. KLOR-CON [Concomitant]
     Active Substance: POTASSIUM CHLORIDE
     Dosage: 10 MEQ, DAILY
     Route: 048

REACTIONS (17)
  - Pneumonia [Recovered/Resolved]
  - Optic neuropathy [Unknown]
  - Cardiac failure congestive [Not Recovered/Not Resolved]
  - Cataract [Recovered/Resolved]
  - Abasia [Unknown]
  - Ophthalmic herpes zoster [Not Recovered/Not Resolved]
  - Visual acuity reduced [Not Recovered/Not Resolved]
  - Product use issue [Unknown]
  - Urinary tract infection [Not Recovered/Not Resolved]
  - Oedema [Not Recovered/Not Resolved]
  - Herpes zoster [Not Recovered/Not Resolved]
  - Eyelid oedema [Unknown]
  - Pulmonary thrombosis [Unknown]
  - Fluid retention [Unknown]
  - Ecchymosis [Unknown]
  - Renal impairment [Not Recovered/Not Resolved]
  - Scab [Unknown]

NARRATIVE: CASE EVENT DATE: 2006
